FAERS Safety Report 13617339 (Version 4)
Quarter: 2019Q4

REPORT INFORMATION
  Report Type: Report from Study
  Country: US (occurrence: US)
  Receive Date: 20170606
  Receipt Date: 20191126
  Transmission Date: 20200122
  Serious: Yes (Other)
  Sender: FDA-Public Use
  Company Number: US-SA-2017SA019515

PATIENT
  Age: 73 Year
  Sex: Female

DRUGS (3)
  1. INSULIN GLARGINE [Suspect]
     Active Substance: INSULIN GLARGINE
     Indication: TYPE 2 DIABETES MELLITUS
     Dosage: 22 DF, QD
     Route: 065
  2. INSULIN GLARGINE [Suspect]
     Active Substance: INSULIN GLARGINE
     Dosage: 18 DF, QD
     Route: 065
  3. INSULIN GLARGINE [Suspect]
     Active Substance: INSULIN GLARGINE
     Dosage: 24 U, QD
     Route: 065

REACTIONS (4)
  - Cataract [Unknown]
  - Product storage error [Unknown]
  - Hypoglycaemia [Recovered/Resolved]
  - Visual impairment [Unknown]
